FAERS Safety Report 10163430 (Version 2)
Quarter: 2014Q2

REPORT INFORMATION
  Report Type: Spontaneous
  Country: DE (occurrence: DE)
  Receive Date: 20140509
  Receipt Date: 20140509
  Transmission Date: 20141212
  Serious: Yes (Other)
  Sender: FDA-Public Use
  Company Number: DE-SA-2014SA036057

PATIENT
  Age: 62 Year
  Sex: Female
  Weight: 62 kg

DRUGS (4)
  1. CLEXANE [Suspect]
     Indication: DEEP VEIN THROMBOSIS
     Route: 058
     Dates: start: 20140228, end: 20140319
  2. L-THYROXIN [Concomitant]
  3. ATENOLOL [Concomitant]
     Dosage: STRENGTH: 50
     Route: 048
  4. JODTHYROX [Concomitant]
     Dosage: STRENGTH: 125
     Route: 048

REACTIONS (1)
  - Leukopenia [Recovered/Resolved]
